FAERS Safety Report 9569949 (Version 3)
Quarter: 2014Q1

REPORT INFORMATION
  Report Type: Spontaneous
  Country: US (occurrence: US)
  Receive Date: 20130930
  Receipt Date: 20140120
  Transmission Date: 20141002
  Serious: Yes (Other)
  Sender: FDA-Public Use
  Company Number: US-AMGEN-USASP2013065843

PATIENT
  Age: 51 Year
  Sex: Female
  Weight: 59.86 kg

DRUGS (6)
  1. ENBREL [Suspect]
     Indication: RHEUMATOID ARTHRITIS
     Dosage: 50 MG, QWK
     Route: 058
  2. LEFLUNOMIDE [Concomitant]
     Dosage: 10 MG, UNK
  3. MULTIVITAMINS, PLAIN [Concomitant]
     Dosage: UNK
  4. OMEGA 3                            /01334101/ [Concomitant]
     Dosage: 1000 MG, UNK
  5. PROBIOTIC                          /06395501/ [Concomitant]
     Dosage: UNK
  6. CALCIUM [Concomitant]
     Dosage: 500

REACTIONS (8)
  - Cellulitis [Recovered/Resolved]
  - Injection site erythema [Unknown]
  - Injection site reaction [Unknown]
  - Injection site swelling [Unknown]
  - Infected cyst [Recovered/Resolved]
  - Feeling hot [Unknown]
  - Cyst [Unknown]
  - Erythema [Unknown]
